FAERS Safety Report 14993307 (Version 1)
Quarter: 2018Q2

REPORT INFORMATION
  Report Type: Spontaneous
  Country: GB (occurrence: GB)
  Receive Date: 20180610
  Receipt Date: 20180610
  Transmission Date: 20180711
  Serious: Yes (Hospitalization)
  Sender: FDA-Public Use
  Company Number: PHHY2018GB016339

PATIENT
  Sex: Male

DRUGS (7)
  1. SIMVASTATIN. [Concomitant]
     Active Substance: SIMVASTATIN
     Indication: PROPHYLAXIS
     Dosage: 40 MG, QD
     Route: 065
  2. EVACAL D3 [Concomitant]
     Indication: NUTRITIONAL SUPPLEMENTATION
     Dosage: 2 DF, QD
     Route: 065
  3. WARFARIN [Concomitant]
     Active Substance: WARFARIN
     Indication: DEEP VEIN THROMBOSIS
     Dosage: 1 DF, QD
     Route: 065
  4. FUROSEMIDE. [Concomitant]
     Active Substance: FUROSEMIDE
     Indication: COR PULMONALE
     Dosage: 220 MG, QD
     Route: 065
  5. TAMSULOSIN [Concomitant]
     Active Substance: TAMSULOSIN
     Indication: URGE INCONTINENCE
     Dosage: 400 UG, QD
     Route: 065
  6. COCODAMOL [Suspect]
     Active Substance: ACETAMINOPHEN\CODEINE PHOSPHATE
     Indication: PAIN
     Dosage: 8 DF, QD
     Route: 048
     Dates: end: 20171108
  7. CODEINE PHOSPHATE [Suspect]
     Active Substance: CODEINE PHOSPHATE
     Indication: PAIN
     Dosage: 30 MG, QID
     Route: 048
     Dates: start: 20171026, end: 20171108

REACTIONS (3)
  - Constipation [Recovered/Resolved]
  - Nausea [Recovered/Resolved]
  - Hypophagia [Recovered/Resolved]

NARRATIVE: CASE EVENT DATE: 20171103
